FAERS Safety Report 6544584-6 (Version None)
Quarter: 2010Q1

REPORT INFORMATION
  Report Type: 
  Country: None (occurrence: None)
  Receive Date: 20100115
  Receipt Date: 20100107
  Transmission Date: 20100710
  Serious: Yes (Hospitalization)
  Sender: FDA-Public Use
  Company Number: 2009JP006679

PATIENT
  Age: 46 Year
  Sex: Male
  Weight: 62.3 kg

DRUGS (9)
  1. PROGRAF [Suspect]
     Dosage: 2 MG, BID, ORAL; 3 MG, BID, ORAL; 5 MG, BID, ORAL
     Route: 048
     Dates: start: 20091016, end: 20091021
  2. PROGRAF [Suspect]
     Dosage: 2 MG, BID, ORAL; 3 MG, BID, ORAL; 5 MG, BID, ORAL
     Route: 048
     Dates: start: 20091022, end: 20091027
  3. PROGRAF [Suspect]
     Dosage: 2 MG, BID, ORAL; 3 MG, BID, ORAL; 5 MG, BID, ORAL
     Route: 048
     Dates: start: 20091028
  4. PREDNISOLONE TAB [Suspect]
     Dosage: 7.5 MG, BID, ORAL; 10 MG, UID/QD, ORAL; 7.5 MG, UID/QD, ORAL; 5 MG, UID/QD, ORAL
     Route: 048
     Dates: start: 20091023, end: 20091118
  5. PREDNISOLONE TAB [Suspect]
     Dosage: 7.5 MG, BID, ORAL; 10 MG, UID/QD, ORAL; 7.5 MG, UID/QD, ORAL; 5 MG, UID/QD, ORAL
     Route: 048
     Dates: start: 20091119, end: 20091207
  6. PREDNISOLONE TAB [Suspect]
     Dosage: 7.5 MG, BID, ORAL; 10 MG, UID/QD, ORAL; 7.5 MG, UID/QD, ORAL; 5 MG, UID/QD, ORAL
     Route: 048
     Dates: start: 20091208, end: 20091220
  7. PREDNISOLONE TAB [Suspect]
     Dosage: 7.5 MG, BID, ORAL; 10 MG, UID/QD, ORAL; 7.5 MG, UID/QD, ORAL; 5 MG, UID/QD, ORAL
     Route: 048
     Dates: start: 20091221
  8. SULFASALAZINE [Concomitant]
  9. MIYA BM (CLOSTRIDIUM BUTYRICUM) [Concomitant]

REACTIONS (2)
  - DEEP VEIN THROMBOSIS [None]
  - PULMONARY EMBOLISM [None]
